FAERS Safety Report 21661226 (Version 3)
Quarter: 2022Q4

REPORT INFORMATION
  Report Type: Report from Study
  Country: CA (occurrence: CA)
  Receive Date: 20221130
  Receipt Date: 20221209
  Transmission Date: 20230112
  Serious: Yes (Other)
  Sender: FDA-Public Use
  Company Number: CA-JNJFOC-20220156753

PATIENT
  Age: 16 Year
  Sex: Female
  Weight: 46 kg

DRUGS (3)
  1. REMICADE [Suspect]
     Active Substance: INFLIXIMAB
     Indication: Juvenile idiopathic arthritis
     Route: 042
     Dates: start: 20180529
  2. REMICADE [Suspect]
     Active Substance: INFLIXIMAB
     Indication: Uveitis
     Route: 042
     Dates: end: 202206
  3. REMICADE [Suspect]
     Active Substance: INFLIXIMAB
     Dosage: CHANGED REINDUCTION DOSING TO 240 MG AT WEEK 0, 4 AND THEN EVERY 6
     Route: 042
     Dates: start: 20221201

REACTIONS (3)
  - Uveitis [Unknown]
  - COVID-19 [Recovered/Resolved]
  - Arthropathy [Unknown]

NARRATIVE: CASE EVENT DATE: 20220101
